FAERS Safety Report 9642886 (Version 1)
Quarter: 2013Q4

REPORT INFORMATION
  Report Type: Report from Study
  Country: AR (occurrence: AR)
  Receive Date: 20131024
  Receipt Date: 20131024
  Transmission Date: 20140711
  Serious: Yes (Other)
  Sender: FDA-Public Use
  Company Number: PHHY2013AR119469

PATIENT
  Sex: Female

DRUGS (1)
  1. DIOVAN [Suspect]
     Indication: HYPERTENSION
     Dosage: 0.5 DF, (160 MG) DAILY
     Route: 048

REACTIONS (8)
  - Fall [Recovering/Resolving]
  - Loss of consciousness [Recovering/Resolving]
  - Spinal column injury [Recovering/Resolving]
  - Dehydration [Recovering/Resolving]
  - Syncope [Recovering/Resolving]
  - Diarrhoea [Recovering/Resolving]
  - Movement disorder [Recovering/Resolving]
  - Wrong technique in drug usage process [Unknown]
